FAERS Safety Report 4338580-7 (Version None)
Quarter: 2004Q2

REPORT INFORMATION
  Report Type: 
  Country: None (occurrence: None)
  Receive Date: 20040407
  Receipt Date: 20040323
  Transmission Date: 20050107
  Serious: Yes (Other)
  Sender: FDA-Public Use
  Company Number: S04-GER-01374-01

PATIENT
  Age: 29 Year
  Sex: Male

DRUGS (4)
  1. CIPRALEX (ESCITALOPRAM) [Suspect]
     Indication: DEPRESSION
     Dosage: 10 MG QD PO
     Route: 048
     Dates: start: 20040108, end: 20040110
  2. ZYPREXA [Concomitant]
  3. RISPERDAL [Concomitant]
  4. LORAZEPAM [Concomitant]

REACTIONS (2)
  - ANGIONEUROTIC OEDEMA [None]
  - DYSPNOEA [None]
